FAERS Safety Report 8861945 (Version 8)
Quarter: 2013Q4

REPORT INFORMATION
  Report Type: Report from Study
  Country: FR (occurrence: FR)
  Receive Date: 20121025
  Receipt Date: 20131022
  Transmission Date: 20140711
  Serious: Yes (Hospitalization)
  Sender: FDA-Public Use
  Company Number: FR-BRISTOL-MYERS SQUIBB COMPANY-16788614

PATIENT
  Age: 49 Year
  Sex: Female

DRUGS (4)
  1. IPILIMUMAB [Suspect]
     Indication: METASTATIC MALIGNANT MELANOMA
     Dosage: INTERR 26JUN12
     Route: 042
     Dates: start: 20120516, end: 20120626
  2. LEVOTHYROX [Concomitant]
     Dosage: ALSO FROM 7SEP2012
     Dates: start: 20120627
  3. XYZALL [Concomitant]
     Dates: start: 20120606
  4. ATARAX [Concomitant]
     Dates: start: 20120606

REACTIONS (2)
  - Septic shock [Recovered/Resolved]
  - Hypophysitis [Not Recovered/Not Resolved]
